FAERS Safety Report 13702579 (Version 2)
Quarter: 2017Q3

REPORT INFORMATION
  Report Type: Report from Study
  Country: US (occurrence: US)
  Receive Date: 20170629
  Receipt Date: 20170724
  Transmission Date: 20171127
  Serious: Yes (Other)
  Sender: FDA-Public Use
  Company Number: US-EXELIXIS-CABO-17009558

PATIENT
  Sex: Male

DRUGS (14)
  1. BISOPROLOL HCT [Concomitant]
     Active Substance: BISOPROLOL FUMARATE\HYDROCHLOROTHIAZIDE
  2. MELATONIN [Concomitant]
     Active Substance: MELATONIN
  3. CABOMETYX [Suspect]
     Active Substance: CABOZANTINIB S-MALATE
     Indication: RENAL CANCER
     Dosage: 60 MG, QD
     Route: 048
     Dates: start: 20160629, end: 201608
  4. CABOMETYX [Suspect]
     Active Substance: CABOZANTINIB S-MALATE
     Dosage: 20 MG, 1 TAB QD X 4 DAYS THEN 40 MG, 2 TABS ON DAY 5, THEN REPEAT
     Route: 048
     Dates: start: 20170624
  5. VITAMIN D [Concomitant]
     Active Substance: CHOLECALCIFEROL
  6. ALPHA LIPOIC [Concomitant]
  7. SELENIUM [Concomitant]
     Active Substance: SELENIUM
  8. MILK THISTLE PLUS [Concomitant]
  9. CABOMETYX [Suspect]
     Active Substance: CABOZANTINIB S-MALATE
     Dosage: 20 MG, 1 TAB QD X 4 DAYS THEN 40 MG, 2 TABS ON DAY 5, THEN REPEAT
     Route: 048
     Dates: start: 201702
  10. LOSARTAN. [Concomitant]
     Active Substance: LOSARTAN
  11. KEPPRA [Concomitant]
     Active Substance: LEVETIRACETAM
  12. VENTOLIN HFA [Concomitant]
     Active Substance: ALBUTEROL SULFATE
  13. ATIVAN [Concomitant]
     Active Substance: LORAZEPAM
  14. CABOMETYX [Suspect]
     Active Substance: CABOZANTINIB S-MALATE
     Indication: MALIGNANT URINARY TRACT NEOPLASM
     Dosage: 20 MG / 40 MG EVERY OTHER DAY
     Route: 048
     Dates: start: 20160917, end: 201702

REACTIONS (1)
  - Cerebrovascular accident [Unknown]
